FAERS Safety Report 4699632-5 (Version None)
Quarter: 2005Q2

REPORT INFORMATION
  Report Type: 
  Country: None (occurrence: None)
  Receive Date: 20050623
  Receipt Date: 20050617
  Transmission Date: 20051028
  Serious: Yes (Life-Threatening, Hospitalization)
  Sender: FDA-Public Use
  Company Number: 200511914GDS

PATIENT
  Age: 71 Year
  Sex: Female
  Weight: 68 kg

DRUGS (7)
  1. ASPIRIN [Suspect]
     Dosage: 400 MG, TOTAL DAILY, ORAL
     Route: 048
     Dates: end: 20050404
  2. MEFENAMIC ACID [Suspect]
     Dosage: 1500 MG, TOTAL DAILY, ORAL
     Route: 048
     Dates: start: 20040801, end: 20050404
  3. BISOPROLOL [Concomitant]
  4. VALSARTAN [Concomitant]
  5. DIHYDROERGOTOXINE [Concomitant]
  6. OXAZEPAM [Concomitant]
  7. FLUVASTATIN [Concomitant]

REACTIONS (3)
  - DEPRESSION [None]
  - PNEUMONIA BACTERIAL [None]
  - RENAL FAILURE ACUTE [None]
